FAERS Safety Report 9469884 (Version 2)
Quarter: 2013Q3

REPORT INFORMATION
  Report Type: Spontaneous
  Country: JP (occurrence: JP)
  Receive Date: 20130822
  Receipt Date: 20130822
  Transmission Date: 20140515
  Serious: Yes (Other)
  Sender: FDA-Public Use
  Company Number: JP-NAPPMUNDI-GBR-2013-0015342

PATIENT
  Age: 46 Year
  Sex: Female

DRUGS (3)
  1. OXYCODONE HYDROCHLORIDE [Suspect]
     Indication: PRODUCT USED FOR UNKNOWN INDICATION
     Dosage: 63 MG, DAILY
     Route: 042
  2. OXYCODONE HYDROCHLORIDE [Suspect]
     Dosage: 54 MG, DAILY
     Route: 042
  3. OXYCODONE HYDROCHLORIDE [Suspect]
     Dosage: 63 MG, DAILY
     Route: 042

REACTIONS (2)
  - Delirium [Recovering/Resolving]
  - Somnolence [Recovering/Resolving]
